FAERS Safety Report 17892601 (Version 1)
Quarter: 2020Q2

REPORT INFORMATION
  Report Type: Spontaneous
  Country: US (occurrence: US)
  Receive Date: 20200612
  Receipt Date: 20200612
  Transmission Date: 20200714
  Serious: Yes (Other)
  Sender: FDA-Public Use
  Company Number: US-GILEAD-2020-0471143

PATIENT
  Age: 60 Year
  Sex: Female
  Weight: 103 kg

DRUGS (26)
  1. BUPROPION. [Concomitant]
     Active Substance: BUPROPION
  2. BENZOCAINE-MENTHOL [Concomitant]
  3. CALCIUM CARBONATE. [Concomitant]
     Active Substance: CALCIUM CARBONATE
  4. SERTRALINE [Concomitant]
     Active Substance: SERTRALINE HYDROCHLORIDE
  5. FAMOTIDINE. [Concomitant]
     Active Substance: FAMOTIDINE
  6. HYDROMORPHONE [Concomitant]
     Active Substance: HYDROMORPHONE
  7. TEMAZEPAM. [Concomitant]
     Active Substance: TEMAZEPAM
  8. ACETAMINOPHEN. [Concomitant]
     Active Substance: ACETAMINOPHEN
  9. MELATONIN [Concomitant]
     Active Substance: MELATONIN
  10. MIDAZOLAM. [Concomitant]
     Active Substance: MIDAZOLAM
  11. NOREPINEPHRINE. [Concomitant]
     Active Substance: NOREPINEPHRINE
  12. NYSTATIN. [Concomitant]
     Active Substance: NYSTATIN
  13. TRAZODONE [Concomitant]
     Active Substance: TRAZODONE HYDROCHLORIDE
  14. REMDESIVIR. [Suspect]
     Active Substance: REMDESIVIR
     Indication: COVID-19
     Dosage: 200 MG, ONCE
     Route: 042
     Dates: start: 20190601, end: 20190601
  15. PROPOFOL. [Concomitant]
     Active Substance: PROPOFOL
  16. REMDESIVIR. [Suspect]
     Active Substance: REMDESIVIR
     Dosage: 100 MG, QD
     Route: 042
     Dates: start: 20200602, end: 20200603
  17. DIPHENHYDRAMINE. [Concomitant]
     Active Substance: DIPHENHYDRAMINE
  18. FENTANYL. [Concomitant]
     Active Substance: FENTANYL
  19. POLYETHYLENE GLYCOL [MACROGOL] [Concomitant]
     Active Substance: POLYETHYLENE GLYCOLS
  20. BISACODYL. [Concomitant]
     Active Substance: BISACODYL
  21. GUAIFENESIN. [Concomitant]
     Active Substance: GUAIFENESIN
  22. AZITHROMYCIN ANHYDROUS. [Concomitant]
     Active Substance: AZITHROMYCIN ANHYDROUS
  23. ENOXAPARIN [ENOXAPARIN SODIUM] [Concomitant]
     Active Substance: ENOXAPARIN SODIUM
  24. ONDANSETRON [Concomitant]
     Active Substance: ONDANSETRON
  25. POTASSIUM BICARBONATE/CITRIC ACID [Concomitant]
  26. SENNA [SENNA ALEXANDRINA] [Concomitant]
     Active Substance: SENNA LEAF

REACTIONS (3)
  - Endotracheal intubation [Not Recovered/Not Resolved]
  - Liver function test increased [Not Recovered/Not Resolved]
  - Oxygen saturation decreased [Not Recovered/Not Resolved]

NARRATIVE: CASE EVENT DATE: 20200603
